FAERS Safety Report 5379285-3 (Version None)
Quarter: 2007Q3

REPORT INFORMATION
  Report Type: 
  Country: None (occurrence: None)
  Receive Date: 20070705
  Receipt Date: 20070620
  Transmission Date: 20080115
  Serious: Yes (Hospitalization, Other)
  Sender: FDA-Public Use
  Company Number: CA-SHR-CA-2007-019560

PATIENT
  Age: 45 Year
  Sex: Male
  Weight: 85 kg

DRUGS (6)
  1. BETASERON [Suspect]
     Indication: RELAPSING-REMITTING MULTIPLE SCLEROSIS
     Dosage: 8 MIU, EVERY 2D
     Route: 058
     Dates: start: 19971027, end: 20061101
  2. BETASERON [Suspect]
     Dosage: 8 MIU, EVERY 2D
     Route: 058
     Dates: start: 20070301, end: 20070523
  3. IMOVANE [Concomitant]
     Indication: INSOMNIA
     Route: 048
  4. PAXIL [Concomitant]
     Indication: ANTIDEPRESSANT THERAPY
     Dosage: 10 MG, 2X/DAY
     Route: 048
  5. PROGRAF [Concomitant]
     Indication: PROPHYLAXIS
     Dosage: 5 MG/D, UNK
     Route: 048
  6. ZANAFLEX [Concomitant]
     Dosage: 4 MG, BED T.
     Route: 048

REACTIONS (13)
  - DYSPHAGIA [None]
  - HYPOAESTHESIA [None]
  - JOINT RANGE OF MOTION DECREASED [None]
  - MUSCLE SPASMS [None]
  - OEDEMA PERIPHERAL [None]
  - PAIN [None]
  - PHARYNGEAL OEDEMA [None]
  - PNEUMONIA [None]
  - POLLAKIURIA [None]
  - RENAL FAILURE [None]
  - SERUM SICKNESS [None]
  - SWELLING [None]
  - SWELLING FACE [None]
